FAERS Safety Report 24235567 (Version 3)
Quarter: 2024Q4

REPORT INFORMATION
  Report Type: Report from Study
  Country: CH (occurrence: CH)
  Receive Date: 20240822
  Receipt Date: 20241011
  Transmission Date: 20250115
  Serious: Yes (Hospitalization)
  Sender: ABBVIE
  Company Number: CH-ABBVIE-5867116

PATIENT
  Age: 59 Year
  Sex: Male

DRUGS (3)
  1. CARBIDOPA\LEVODOPA [Suspect]
     Active Substance: CARBIDOPA\LEVODOPA
     Indication: Parkinson^s disease
     Dosage: FREQUENCY TEXT: 16 HRS?LAST ADMINISTRATION DATE 2023
     Route: 050
     Dates: start: 20230111
  2. CARBIDOPA\LEVODOPA [Suspect]
     Active Substance: CARBIDOPA\LEVODOPA
     Dosage: MD: 5.5 ML, CRD: 2.0 ML/H, ED: 0.5 ML, FREQUENCY TEXT: 24 HRS?FREQUENCY TEXT: 16H THERAPY
     Route: 050
     Dates: start: 20231030
  3. CARBIDOPA\LEVODOPA [Suspect]
     Active Substance: CARBIDOPA\LEVODOPA
     Dosage: MD: 5.0 ML, CRD: 2.5 ML/H, ED: 1.5 ML, CRN: 0.5ML?FREQUENCY TEXT: 16H THERAPY
     Route: 050
     Dates: start: 20240731

REACTIONS (7)
  - General physical health deterioration [Recovering/Resolving]
  - Fall [Unknown]
  - Temperature intolerance [Not Recovered/Not Resolved]
  - Device breakage [Recovered/Resolved]
  - Device leakage [Recovered/Resolved]
  - Agitation [Not Recovered/Not Resolved]
  - Parkinson^s disease [Not Recovered/Not Resolved]

NARRATIVE: CASE EVENT DATE: 20240101
